FAERS Safety Report 6171352-X (Version None)
Quarter: 2009Q2

REPORT INFORMATION
  Report Type: 
  Country: None (occurrence: None)
  Receive Date: 20090429
  Receipt Date: 20090421
  Transmission Date: 20091009
  Serious: Yes (Hospitalization, Other)
  Sender: FDA-Public Use
  Company Number: US-AMGEN-US341558

PATIENT
  Sex: Male
  Weight: 122.6 kg

DRUGS (6)
  1. NPLATE [Suspect]
     Indication: IDIOPATHIC THROMBOCYTOPENIC PURPURA
     Route: 058
     Dates: start: 20081008, end: 20081022
  2. HUMALOG [Concomitant]
  3. LIPITOR [Concomitant]
  4. SYMLIN [Concomitant]
  5. METFORMIN HCL [Concomitant]
  6. LEVOTHYROXINE SODIUM [Concomitant]

REACTIONS (2)
  - DRUG INEFFECTIVE [None]
  - SPLENECTOMY [None]
